FAERS Safety Report 12425168 (Version 1)
Quarter: 2016Q2

REPORT INFORMATION
  Report Type: Spontaneous
  Country: DK (occurrence: DK)
  Receive Date: 20160601
  Receipt Date: 20160601
  Transmission Date: 20160815
  Serious: Yes (Hospitalization)
  Sender: FDA-Public Use
  Company Number: DK-MEDA-2016050094

PATIENT
  Age: 19 Year
  Sex: Male

DRUGS (4)
  1. OXYMETHOLONE [Suspect]
     Active Substance: OXYMETHOLONE
     Route: 048
  2. NANDROLONE [Suspect]
     Active Substance: NANDROLONE
     Route: 030
  3. METHANDRIOL [Suspect]
     Active Substance: METHANDRIOL
     Route: 048
  4. TRIENOLONE [Suspect]
     Active Substance: TRENBOLONE
     Route: 030

REACTIONS (2)
  - Pulmonary alveolar haemorrhage [Recovered/Resolved]
  - Drug abuse [Recovered/Resolved]
